FAERS Safety Report 21568648 (Version 2)
Quarter: 2022Q4

REPORT INFORMATION
  Report Type: Spontaneous
  Country: US (occurrence: US)
  Receive Date: 20221108
  Receipt Date: 20221216
  Transmission Date: 20230113
  Serious: No
  Sender: FDA-Public Use
  Company Number: US-JNJFOC-20221047382

PATIENT
  Age: 90 Year
  Sex: Male

DRUGS (2)
  1. BALVERSA [Suspect]
     Active Substance: ERDAFITINIB
     Indication: Product used for unknown indication
     Dosage: FOR 3 MONTHS
     Route: 065
  2. BALVERSA [Suspect]
     Active Substance: ERDAFITINIB
     Dosage: FOR 10 DAYS
     Route: 065

REACTIONS (6)
  - Nail disorder [Not Recovered/Not Resolved]
  - Onychomadesis [Not Recovered/Not Resolved]
  - Nail ridging [Not Recovered/Not Resolved]
  - Nail bed bleeding [Not Recovered/Not Resolved]
  - Eye disorder [Recovering/Resolving]
  - Stomatitis [Recovering/Resolving]
